FAERS Safety Report 18329097 (Version 1)
Quarter: 2020Q3

REPORT INFORMATION
  Report Type: Spontaneous
  Country: US (occurrence: US)
  Receive Date: 20200929
  Receipt Date: 20200929
  Transmission Date: 20201103
  Serious: Yes (Hospitalization)
  Sender: FDA-Public Use
  Company Number: None

PATIENT
  Age: 52 Year
  Sex: Female
  Weight: 62.1 kg

DRUGS (4)
  1. MUCINEX [Concomitant]
     Active Substance: GUAIFENESIN
  2. WARFARIN [Concomitant]
     Active Substance: WARFARIN
  3. PANTOPRAZOLE [Suspect]
     Active Substance: PANTOPRAZOLE
     Indication: GASTROOESOPHAGEAL REFLUX DISEASE
     Dosage: ?          QUANTITY:60 TABLET(S);?
     Route: 048
     Dates: start: 20200911, end: 20200927
  4. SUDAPHED [Concomitant]

REACTIONS (11)
  - Blood urine present [None]
  - Gait disturbance [None]
  - Tremor [None]
  - Flatulence [None]
  - Blood pressure increased [None]
  - Dyspnoea [None]
  - Chills [None]
  - Amnesia [None]
  - Decreased activity [None]
  - Inflammation [None]
  - Heart rate increased [None]

NARRATIVE: CASE EVENT DATE: 20200915
